FAERS Safety Report 8793023 (Version 2)
Quarter: 2013Q4

REPORT INFORMATION
  Report Type: Spontaneous
  Country: US (occurrence: US)
  Receive Date: 20120918
  Receipt Date: 20131031
  Transmission Date: 20140711
  Serious: No
  Sender: FDA-Public Use
  Company Number: US-009507513-2012SP017490

PATIENT
  Sex: Female
  Weight: 65.59 kg

DRUGS (5)
  1. MIRALAX [Suspect]
     Indication: CONSTIPATION
     Dosage: 17 G, BID
     Route: 048
     Dates: start: 201112
  2. MIRALAX [Suspect]
     Indication: MEDICAL OBSERVATION
  3. AMITIZA [Concomitant]
     Indication: CONSTIPATION
  4. METAMUCIL [Concomitant]
     Indication: CONSTIPATION
  5. SUMATRIPTAN [Concomitant]
     Indication: MIGRAINE

REACTIONS (2)
  - Overdose [Unknown]
  - Incorrect drug administration duration [Unknown]
